FAERS Safety Report 21794178 (Version 1)
Quarter: 2022Q4

REPORT INFORMATION
  Report Type: Spontaneous
  Country: US (occurrence: None)
  Receive Date: 20221228
  Receipt Date: 20221228
  Transmission Date: 20230113
  Serious: Yes (unspecified)
  Sender: FDA-Public Use
  Company Number: None

PATIENT
  Age: 58 Year
  Sex: Male
  Weight: 72 kg

DRUGS (1)
  1. LEVAQUIN [Suspect]
     Active Substance: LEVOFLOXACIN
     Indication: Sepsis
     Dosage: FREQUENCY : DAILY;?
     Route: 048
     Dates: start: 20221204, end: 20221228

REACTIONS (3)
  - Renal pain [None]
  - Heart rate increased [None]
  - Nausea [None]

NARRATIVE: CASE EVENT DATE: 20221228
